FAERS Safety Report 25660338 (Version 1)
Quarter: 2025Q3

REPORT INFORMATION
  Report Type: Other
  Country: CN (occurrence: CN)
  Receive Date: 20250808
  Receipt Date: 20250808
  Transmission Date: 20251021
  Serious: Yes (Life-Threatening, Hospitalization, Other)
  Sender: INNOVIVA
  Company Number: 4401041006051202500099

PATIENT

DRUGS (4)
  1. ZEVTERA [Suspect]
     Active Substance: CEFTOBIPROLE MEDOCARIL SODIUM
     Indication: Pneumonia
     Dosage: 500 MG, TID
     Route: 041
     Dates: start: 20250618, end: 20250704
  2. LEVOFLOXACIN [Concomitant]
     Active Substance: LEVOFLOXACIN
     Indication: Infection
     Dates: start: 20250630, end: 20250704
  3. ISONIAZID [Concomitant]
     Active Substance: ISONIAZID
     Indication: Pneumonia
     Dates: start: 20250610, end: 20250704
  4. ISONIAZID [Concomitant]
     Active Substance: ISONIAZID
     Indication: Pulmonary tuberculosis

REACTIONS (1)
  - Epilepsy [Recovering/Resolving]

NARRATIVE: CASE EVENT DATE: 20250704
